FAERS Safety Report 7690645-8 (Version None)
Quarter: 2011Q3

REPORT INFORMATION
  Report Type: 
  Country: None (occurrence: None)
  Receive Date: 20110818
  Receipt Date: 20110809
  Transmission Date: 20111222
  Serious: Yes (Hospitalization)
  Sender: FDA-Public Use
  Company Number: SE-NAPPMUNDI-GBR-2011-0008632

PATIENT
  Sex: Female

DRUGS (7)
  1. BUPRENORPHINE [Suspect]
     Indication: PRODUCT USED FOR UNKNOWN INDICATION
     Dosage: UNK
     Route: 062
     Dates: end: 20110601
  2. VAGIFEM [Concomitant]
  3. PAMOL [Concomitant]
  4. BISOPROLOL FUMARATE [Concomitant]
  5. CILAXORAL [Concomitant]
  6. LAKTULOS [Concomitant]
  7. ENALAPRIL                          /00574902/ [Concomitant]

REACTIONS (5)
  - HYPOPHAGIA [None]
  - SOMNOLENCE [None]
  - FLUID INTAKE REDUCED [None]
  - HYPOTENSION [None]
  - NAUSEA [None]
